FAERS Safety Report 10497660 (Version 1)
Quarter: 2014Q4

REPORT INFORMATION
  Report Type: Report from Study
  Country: US (occurrence: US)
  Receive Date: 20141006
  Receipt Date: 20141006
  Transmission Date: 20150528
  Serious: Yes (Other)
  Sender: FDA-Public Use
  Company Number: US-AMGEN-USASL2014075703

PATIENT
  Age: 57 Year
  Sex: Male

DRUGS (1)
  1. ENBREL [Suspect]
     Active Substance: ETANERCEPT
     Indication: PSORIASIS
     Dosage: UNK UNK, 2 TIMES/WK
     Route: 065
     Dates: start: 20140601

REACTIONS (5)
  - Dizziness [Recovered/Resolved]
  - Skin disorder [Not Recovered/Not Resolved]
  - Sinusitis [Recovered/Resolved]
  - Skin discolouration [Not Recovered/Not Resolved]
  - Injury [Recovered/Resolved]

NARRATIVE: CASE EVENT DATE: 201408
